FAERS Safety Report 6236954-0 (Version None)
Quarter: 2009Q2

REPORT INFORMATION
  Report Type: 
  Country: None (occurrence: None)
  Receive Date: 20090619
  Receipt Date: 20090226
  Transmission Date: 20091009
  Serious: No
  Sender: FDA-Public Use
  Company Number: US-ASTRAZENECA-2009UW05339

PATIENT
  Age: 5 Year
  Sex: Male

DRUGS (5)
  1. SYMBICORT [Suspect]
     Indication: ASTHMA
     Dosage: 160 MCG
     Route: 055
     Dates: start: 20090209
  2. FLUCONAZOLE [Concomitant]
     Indication: OROPHARYNGEAL PAIN
     Route: 048
  3. XOPENEX [Concomitant]
     Indication: ASTHMA
     Route: 055
  4. NASONEX [Concomitant]
     Indication: MULTIPLE ALLERGIES
     Route: 045
  5. SINGULAIR [Concomitant]
     Indication: MULTIPLE ALLERGIES
     Route: 048

REACTIONS (3)
  - FATIGUE [None]
  - OROPHARYNGEAL PAIN [None]
  - THIRST [None]
